FAERS Safety Report 20864524 (Version 5)
Quarter: 2023Q2

REPORT INFORMATION
  Report Type: Report from Study
  Country: CN (occurrence: CN)
  Receive Date: 20220524
  Receipt Date: 20230629
  Transmission Date: 20230722
  Serious: Yes (Life-Threatening, Hospitalization)
  Sender: FDA-Public Use
  Company Number: CN-ABBVIE-22P-035-4398325-00

PATIENT
  Age: 67 Year
  Sex: Female

DRUGS (13)
  1. VENETOCLAX [Suspect]
     Active Substance: VENETOCLAX
     Indication: Myelodysplastic syndrome
     Dosage: DAYS 1 - 14 OF EACH 28-DAY CYCLE
     Route: 048
     Dates: start: 20220324, end: 20220506
  2. AZACITIDINE [Suspect]
     Active Substance: AZACITIDINE
     Indication: Myelodysplastic syndrome
     Dosage: 7 DAYS WITHIN THE FIRST 9 CALENDAR DAYS OF EACH 28-DAY CYCLE
     Route: 058
     Dates: start: 20220324, end: 20220429
  3. INDAPAMIDE [Concomitant]
     Active Substance: INDAPAMIDE
     Indication: Hypertension
     Route: 048
     Dates: start: 2008, end: 20220714
  4. FENOFIBRATE [Concomitant]
     Active Substance: FENOFIBRATE
     Indication: Hypertension
     Route: 048
     Dates: start: 2012, end: 20220714
  5. COMPOUND SALVIA MILTIORRHIZA [Concomitant]
     Indication: Cardiovascular event prophylaxis
     Route: 048
     Dates: start: 2012, end: 20220714
  6. PHOSPHOCREATINE [Concomitant]
     Active Substance: PHOSPHOCREATINE
     Indication: Cardiovascular event prophylaxis
     Route: 041
     Dates: start: 20220523, end: 20220531
  7. BIAPENEM [Concomitant]
     Active Substance: BIAPENEM
     Indication: Pneumonia
     Route: 041
     Dates: start: 20220523, end: 20220530
  8. CARBAZOCHRME SODIUM SULFONATE AND SODIUM CHLORIDE [Concomitant]
     Indication: Prophylaxis
     Route: 041
     Dates: start: 20220523, end: 20220601
  9. DIISOPROPYLAMMONIUM DICHLOROACETATE [Concomitant]
     Active Substance: DIISOPROPYLAMMONIUM DICHLOROACETATE
     Indication: Liver disorder
     Route: 041
     Dates: start: 20220523, end: 20220601
  10. RIBOFLAVIN 5^-PHOSPHATE SODIUM ANHYDROUS [Concomitant]
     Active Substance: RIBOFLAVIN 5^-PHOSPHATE SODIUM ANHYDROUS
     Indication: Mucosal disorder
     Route: 041
     Dates: start: 20220523, end: 20220601
  11. VANCOMYCIN [Concomitant]
     Active Substance: VANCOMYCIN
     Indication: Pneumonia
     Route: 041
     Dates: start: 20220429, end: 20220601
  12. VORICONAZOLE [Concomitant]
     Active Substance: VORICONAZOLE
     Indication: Pneumonia
     Route: 041
     Dates: start: 20220524, end: 20220601
  13. IBUPROFEN [Concomitant]
     Active Substance: IBUPROFEN
     Indication: Pneumonia
     Dosage: SUSPENSION
     Route: 048
     Dates: start: 20220526, end: 20220603

REACTIONS (3)
  - Anaemia [Recovered/Resolved]
  - Platelet count decreased [Recovered/Resolved]
  - Transformation to acute myeloid leukaemia [Recovered/Resolved]

NARRATIVE: CASE EVENT DATE: 20220515
